FAERS Safety Report 6306043-5 (Version None)
Quarter: 2009Q3

REPORT INFORMATION
  Report Type: 
  Country: None (occurrence: None)
  Receive Date: 20090812
  Receipt Date: 20090806
  Transmission Date: 20100115
  Serious: Yes (Hospitalization)
  Sender: FDA-Public Use
  Company Number: US-JNJFOC-20090802946

PATIENT
  Sex: Female
  Weight: 38.56 kg

DRUGS (2)
  1. DURAGESIC-100 [Suspect]
     Indication: BACK PAIN
     Route: 062
  2. VALIUM [Concomitant]
     Indication: MUSCLE TIGHTNESS
     Route: 048

REACTIONS (9)
  - AMENORRHOEA [None]
  - CONSTIPATION [None]
  - FLUID RETENTION [None]
  - INSOMNIA [None]
  - MENOPAUSAL SYMPTOMS [None]
  - MUSCLE SPASMS [None]
  - NAUSEA [None]
  - SPINAL COLUMN STENOSIS [None]
  - STAPHYLOCOCCAL INFECTION [None]
